FAERS Safety Report 9674876 (Version 1)
Quarter: 2013Q4

REPORT INFORMATION
  Report Type: Spontaneous
  Country: DE (occurrence: DE)
  Receive Date: 20131107
  Receipt Date: 20131107
  Transmission Date: 20140711
  Serious: Yes (Other)
  Sender: FDA-Public Use
  Company Number: PHHY2013DE125571

PATIENT
  Sex: Female

DRUGS (1)
  1. LEPONEX [Suspect]
     Dosage: UNK UKN, UNK
     Dates: start: 2002

REACTIONS (1)
  - Breast cancer [Unknown]
